FAERS Safety Report 13398414 (Version 1)
Quarter: 2017Q2

REPORT INFORMATION
  Report Type: Spontaneous
  Country: DE (occurrence: DE)
  Receive Date: 20170403
  Receipt Date: 20170403
  Transmission Date: 20170830
  Serious: Yes (Other)
  Sender: FDA-Public Use
  Company Number: DE-INCYTE CORPORATION-2017IN002360

PATIENT
  Sex: Female

DRUGS (5)
  1. SYREA [Concomitant]
     Active Substance: HYDROXYUREA
     Indication: PRODUCT USED FOR UNKNOWN INDICATION
     Dosage: 500 MG, BID
     Route: 065
  2. JAKAVI [Suspect]
     Active Substance: RUXOLITINIB
     Dosage: 1 X 5 MG PER DAY ALTERNATING WITH 2 X 5 MG PER DAY
     Route: 065
     Dates: start: 201611, end: 20170110
  3. JAKAVI [Suspect]
     Active Substance: RUXOLITINIB
     Dosage: 5 MG UNK
     Route: 065
     Dates: start: 201701, end: 201703
  4. JAKAVI [Suspect]
     Active Substance: RUXOLITINIB
     Dosage: 5 MG UNK
     Route: 065
     Dates: start: 201703
  5. JAKAVI [Suspect]
     Active Substance: RUXOLITINIB
     Indication: MYELOFIBROSIS
     Dosage: 20 MG, QD (DAILY)
     Route: 065
     Dates: start: 2015, end: 2015

REACTIONS (4)
  - Pulmonary hypertension [Unknown]
  - Chest pain [Unknown]
  - Platelet count increased [Unknown]
  - Dizziness [Unknown]

NARRATIVE: CASE EVENT DATE: 2015
